FAERS Safety Report 17577657 (Version 1)
Quarter: 2020Q1

REPORT INFORMATION
  Report Type: Spontaneous
  Country: NL (occurrence: ES)
  Receive Date: 20200324
  Receipt Date: 20200324
  Transmission Date: 20200409
  Serious: Yes (Death, Other)
  Sender: FDA-Public Use
  Company Number: ES-FRESENIUS KABI-FK202002906

PATIENT
  Age: 73 Year
  Sex: Female

DRUGS (4)
  1. FUROSEMIDE (MANUFACTURER UNKNOWN) [Suspect]
     Active Substance: FUROSEMIDE
     Indication: PRODUCT USED FOR UNKNOWN INDICATION
     Route: 042
  2. FUROSEMIDE. [Suspect]
     Active Substance: FUROSEMIDE
     Indication: OEDEMA PERIPHERAL
     Dosage: 2 TABLETS/DAY
     Route: 048
  3. HYDROCHLOROTHIAZIDE. [Concomitant]
     Active Substance: HYDROCHLOROTHIAZIDE
     Indication: PRODUCT USED FOR UNKNOWN INDICATION
     Route: 065
  4. FUROSEMIDE. [Suspect]
     Active Substance: FUROSEMIDE
     Indication: OEDEMA PERIPHERAL
     Dosage: 1 TABLET/DAY
     Route: 048
     Dates: end: 20190226

REACTIONS (11)
  - Arthralgia [Fatal]
  - Heart rate decreased [Fatal]
  - Condition aggravated [Fatal]
  - Insomnia [Fatal]
  - Oedema [Fatal]
  - Weight decreased [Fatal]
  - Urinary retention [Fatal]
  - Dry mouth [Fatal]
  - Sepsis [Fatal]
  - Nausea [Fatal]
  - Drug ineffective [Fatal]

NARRATIVE: CASE EVENT DATE: 20190404
